FAERS Safety Report 7515590-X (Version None)
Quarter: 2011Q2

REPORT INFORMATION
  Report Type: 
  Country: None (occurrence: None)
  Receive Date: 20110601
  Receipt Date: 20100706
  Transmission Date: 20111010
  Serious: No
  Sender: FDA-Public Use
  Company Number: US-PFIZER INC-2010077969

PATIENT
  Sex: Female
  Weight: 44 kg

DRUGS (3)
  1. CHANTIX [Suspect]
     Indication: SMOKING CESSATION THERAPY
     Dosage: UNK
     Route: 048
     Dates: start: 20100619, end: 20100620
  2. HYDROXYZINE [Concomitant]
     Indication: ALLERGY TO ARTHROPOD BITE
     Dosage: UNK
  3. PRED FORTE [Concomitant]
     Indication: EYE INFECTION
     Dosage: UNK

REACTIONS (4)
  - RASH [None]
  - RASH MACULAR [None]
  - LIP BLISTER [None]
  - PRURITUS [None]
